FAERS Safety Report 12370748 (Version 1)
Quarter: 2016Q2

REPORT INFORMATION
  Report Type: Spontaneous
  Country: US (occurrence: US)
  Receive Date: 20160516
  Receipt Date: 20160516
  Transmission Date: 20160815
  Serious: Yes (Hospitalization, Other)
  Sender: FDA-Public Use
  Company Number: US-ZYDUS-011048

PATIENT
  Age: 51 Year
  Sex: Male

DRUGS (1)
  1. DOXYCYCLINE. [Suspect]
     Active Substance: DOXYCYCLINE
     Indication: LYME DISEASE
     Route: 048

REACTIONS (5)
  - Diabetes mellitus [Unknown]
  - Multiple organ dysfunction syndrome [Recovering/Resolving]
  - Pancreatitis acute [Recovering/Resolving]
  - Abdominal tenderness [Recovering/Resolving]
  - Metabolic disorder [Recovering/Resolving]
